FAERS Safety Report 17439791 (Version 1)
Quarter: 2020Q1

REPORT INFORMATION
  Report Type: Spontaneous
  Country: US (occurrence: US)
  Receive Date: 20200220
  Receipt Date: 20200220
  Transmission Date: 20200409
  Serious: Yes (Hospitalization, Other)
  Sender: FDA-Public Use
  Company Number: US-TARO-2020TAR00232

PATIENT
  Age: 48 Year
  Sex: Female

DRUGS (1)
  1. WARFARIN [Suspect]
     Active Substance: WARFARIN
     Indication: ANTICOAGULANT THERAPY
     Dosage: UNK
     Route: 065

REACTIONS (4)
  - International normalised ratio increased [Recovering/Resolving]
  - Skin necrosis [Unknown]
  - Compartment syndrome [Recovered/Resolved]
  - Thrombophlebitis superficial [Recovering/Resolving]
